FAERS Safety Report 8015616-3 (Version None)
Quarter: 2011Q4

REPORT INFORMATION
  Report Type: 
  Country: None (occurrence: None)
  Receive Date: 20111228
  Receipt Date: 20111228
  Transmission Date: 20120403
  Serious: Yes (Disabling, Other)
  Sender: FDA-Public Use
  Company Number: None

PATIENT
  Sex: Male

DRUGS (7)
  1. AXONA 40 G ACCERA, INC [Suspect]
     Indication: DEMENTIA
     Dosage: 40 G QD PO
     Route: 048
     Dates: start: 20090101
  2. ARICEPT [Concomitant]
  3. PREVACID [Concomitant]
  4. MULTI-VITAMIN [Concomitant]
  5. TIMOLOL MALEATE [Concomitant]
  6. PLAVIX [Concomitant]
  7. LEVODOPA [Concomitant]

REACTIONS (9)
  - DYSPNOEA [None]
  - INCREASED UPPER AIRWAY SECRETION [None]
  - NASOPHARYNGITIS [None]
  - WHEEZING [None]
  - PULMONARY MASS [None]
  - WEIGHT INCREASED [None]
  - COUGH [None]
  - PNEUMONIA [None]
  - GAIT DISTURBANCE [None]
